FAERS Safety Report 18991539 (Version 2)
Quarter: 2022Q1

REPORT INFORMATION
  Report Type: Report from Study
  Country: US (occurrence: US)
  Receive Date: 20210310
  Receipt Date: 20220127
  Transmission Date: 20220424
  Serious: Yes (Other)
  Sender: FDA-Public Use
  Company Number: US-NOVARTISPH-NVSC2021US048539

PATIENT
  Sex: Female

DRUGS (2)
  1. EXJADE [Suspect]
     Active Substance: DEFERASIROX
     Indication: Product used for unknown indication
     Dosage: UNK
     Route: 065
  2. ENTRESTO [Suspect]
     Active Substance: SACUBITRIL\VALSARTAN
     Indication: Cardiac failure chronic
     Dosage: UNK
     Route: 065

REACTIONS (7)
  - Lung neoplasm malignant [Unknown]
  - Neoplasm malignant [Unknown]
  - Blood disorder [Unknown]
  - Cardiac disorder [Unknown]
  - Nerve injury [Unknown]
  - Confusional state [Unknown]
  - Dyspepsia [Unknown]
